FAERS Safety Report 8319532 (Version 3)
Quarter: 2015Q1

REPORT INFORMATION
  Report Type: Spontaneous
  Country: US (occurrence: US)
  Receive Date: 20120103
  Receipt Date: 20150327
  Transmission Date: 20150721
  Serious: Yes (Death, Hospitalization, Other)
  Sender: FDA-Public Use
  Company Number: US-GLAXOSMITHKLINE-A0934364A

PATIENT
  Age: 66 Year
  Sex: Female

DRUGS (1)
  1. AVANDIA [Suspect]
     Active Substance: ROSIGLITAZONE MALEATE
     Indication: TYPE 2 DIABETES MELLITUS
     Dosage: 4 MG, 1D
     Route: 048
     Dates: start: 20000323, end: 201008

REACTIONS (8)
  - Cerebrovascular accident [Unknown]
  - Arteriosclerosis [Unknown]
  - Cardiac arrest [Fatal]
  - Cardiac failure congestive [Unknown]
  - Coronary artery disease [Fatal]
  - Atrial fibrillation [Unknown]
  - Myocardial ischaemia [Unknown]
  - Myocardial infarction [Not Recovered/Not Resolved]

NARRATIVE: CASE EVENT DATE: 200501
